FAERS Safety Report 8135802-1 (Version None)
Quarter: 2012Q1

REPORT INFORMATION
  Report Type: 
  Country: None (occurrence: None)
  Receive Date: 20120103
  Receipt Date: 20111107
  Transmission Date: 20120608
  Serious: No
  Sender: FDA-Public Use
  Company Number: AE-2011-003101

PATIENT
  Age: 43 Year
  Sex: Male
  Weight: 54.4316 kg

DRUGS (3)
  1. RIBAVIRIN [Concomitant]
  2. PEGASYS [Concomitant]
  3. INCIVEK [Suspect]
     Dosage: 2250 MG (750 MG, 3 IN 1 D),ORAL
     Route: 048
     Dates: start: 20111009, end: 20111016

REACTIONS (5)
  - FEELING OF BODY TEMPERATURE CHANGE [None]
  - PARAESTHESIA [None]
  - VOMITING [None]
  - FEELING ABNORMAL [None]
  - ARTHRALGIA [None]
